FAERS Safety Report 8545824-4 (Version None)
Quarter: 2012Q3

REPORT INFORMATION
  Report Type: 
  Country: None (occurrence: None)
  Receive Date: 20120727
  Receipt Date: 20120717
  Transmission Date: 20120928
  Serious: Yes (Hospitalization)
  Sender: FDA-Public Use
  Company Number: JP-009507513-1201USA01403

PATIENT

DRUGS (16)
  1. RIBAVIRIN [Suspect]
     Indication: HEPATITIS C
     Dosage: 300 MG, BID
     Route: 048
     Dates: start: 20111207, end: 20111230
  2. KETOPROFEN [Concomitant]
     Indication: ARTHRALGIA
     Dosage: 60 MG, PRN
     Route: 061
     Dates: start: 20110927
  3. PEGINTERFERON ALFA-2B [Suspect]
     Indication: HEPATITIS C
     Dosage: 80 ?G, QW
     Route: 058
     Dates: start: 20111207, end: 20111227
  4. RIBAVIRIN [Suspect]
     Dosage: 300 MG, BID
     Route: 048
     Dates: start: 20120117, end: 20120521
  5. VANIPREVIR [Suspect]
     Indication: HEPATITIS C
     Dosage: UNK
     Route: 048
     Dates: start: 20111207, end: 20111230
  6. FORTEO [Concomitant]
     Indication: OSTEOPOROSIS
     Dosage: 20 ?G, QD
     Route: 058
     Dates: start: 20110530
  7. ALLEGRA [Concomitant]
     Indication: URTICARIA
     Dosage: 60 MG, BID
     Route: 048
     Dates: start: 20110412
  8. PEGINTERFERON ALFA-2B [Suspect]
     Dosage: UNK
  9. CELEBREX [Concomitant]
     Indication: ARTHRALGIA
     Dosage: 100 MG, BID
     Route: 048
     Dates: start: 20110627
  10. VANIPREVIR [Suspect]
     Dosage: UNK
     Route: 048
     Dates: start: 20120418, end: 20120521
  11. PEGINTERFERON ALFA-2B [Suspect]
     Dosage: 80 ?G, QW
     Route: 058
     Dates: start: 20120214, end: 20120221
  12. PEGINTERFERON ALFA-2B [Suspect]
     Dosage: 80 ?G, QW
     Route: 058
     Dates: start: 20120228, end: 20120515
  13. VANIPREVIR [Suspect]
     Dosage: UNK
     Route: 048
     Dates: start: 20120118, end: 20120403
  14. PEGINTERFERON ALFA-2B [Suspect]
     Dosage: 80 ?G, QW
     Route: 058
     Dates: start: 20120117, end: 20120131
  15. PEGINTERFERON ALFA-2B [Suspect]
     Dosage: 54 ?G, QD
     Route: 058
     Dates: start: 20120207, end: 20120207
  16. FAMOTIDINE [Concomitant]
     Indication: GASTRITIS PROPHYLAXIS
     Dosage: 20 MG, QD
     Route: 048
     Dates: start: 20110627

REACTIONS (3)
  - SPINAL COMPRESSION FRACTURE [None]
  - LIGAMENT INJURY [None]
  - CHONDROCALCINOSIS PYROPHOSPHATE [None]
